FAERS Safety Report 24686395 (Version 1)
Quarter: 2024Q4

REPORT INFORMATION
  Report Type: Spontaneous
  Country: JP (occurrence: JP)
  Receive Date: 20241202
  Receipt Date: 20241202
  Transmission Date: 20250115
  Serious: Yes (Other)
  Sender: MERCK
  Company Number: JP-MSD-2411JPN004527J

PATIENT
  Sex: Female

DRUGS (2)
  1. KEYTRUDA [Suspect]
     Active Substance: PEMBROLIZUMAB
     Indication: Uterine cancer
     Dosage: UNK
     Route: 065
  2. LENVATINIB MESYLATE [Suspect]
     Active Substance: LENVATINIB MESYLATE
     Indication: Uterine cancer
     Dosage: UNK
     Route: 065

REACTIONS (10)
  - Gastrointestinal perforation [Unknown]
  - Hypothyroidism [Unknown]
  - Hypertension [Unknown]
  - Stomatitis [Unknown]
  - Platelet count decreased [Unknown]
  - Protein urine [Unknown]
  - Malaise [Unknown]
  - Diarrhoea [Unknown]
  - Arthralgia [Unknown]
  - Palmar-plantar erythrodysaesthesia syndrome [Unknown]
